FAERS Safety Report 9615047 (Version 6)
Quarter: 2014Q2

REPORT INFORMATION
  Report Type: Spontaneous
  Country: US (occurrence: US)
  Receive Date: 20131011
  Receipt Date: 20140422
  Transmission Date: 20141212
  Serious: No
  Sender: FDA-Public Use
  Company Number: US-PFIZER INC-2013290622

PATIENT
  Age: 83 Year
  Sex: Female

DRUGS (5)
  1. SUTENT [Suspect]
     Indication: THYROID CANCER
     Dosage: 25 MG, UNK
     Dates: start: 20130328
  2. LEVOTHYROXINE SODIUM [Concomitant]
     Dosage: UNK
  3. LOSARTAN POTASSIUM [Concomitant]
     Dosage: UNK
  4. OMEPRAZOLE [Concomitant]
     Dosage: UNK
  5. VITAMIN D [Concomitant]
     Dosage: UNK

REACTIONS (5)
  - Flatulence [Unknown]
  - Stomatitis [Unknown]
  - Pain in extremity [Unknown]
  - Off label use [Unknown]
  - Rash [Unknown]
